FAERS Safety Report 8218599-6 (Version None)
Quarter: 2012Q1

REPORT INFORMATION
  Report Type: 
  Country: None (occurrence: None)
  Receive Date: 20120306
  Receipt Date: 20110314
  Transmission Date: 20120608
  Serious: Yes (Death, Other)
  Sender: FDA-Public Use
  Company Number: US-005952

PATIENT
  Age: 53 Year
  Sex: Male

DRUGS (2)
  1. ISOVUE-300 [Suspect]
     Indication: SWELLING
     Dosage: 75ML ONCE  INTRAVENOUS (NOT OTHERWISE SPECIFIED)
     Route: 042
     Dates: start: 20110203, end: 20110203
  2. ISOVUE-300 [Suspect]
     Indication: COMPUTERISED TOMOGRAM
     Dosage: 75ML ONCE  INTRAVENOUS (NOT OTHERWISE SPECIFIED)
     Route: 042
     Dates: start: 20110203, end: 20110203

REACTIONS (2)
  - DYSPNOEA [None]
  - BRADYCARDIA [None]
